FAERS Safety Report 7347477-X (Version None)
Quarter: 2011Q1

REPORT INFORMATION
  Report Type: 
  Country: None (occurrence: None)
  Receive Date: 20110311
  Receipt Date: 20100929
  Transmission Date: 20110831
  Serious: Yes (Hospitalization, Other)
  Sender: FDA-Public Use
  Company Number: US-BAYER-201013325NA

PATIENT
  Sex: Female
  Weight: 90.909 kg

DRUGS (20)
  1. LIPITOR [Concomitant]
     Indication: BLOOD CHOLESTEROL INCREASED
  2. UNKNOWN DRUG [Concomitant]
  3. ERYTHROMYCIN [Concomitant]
  4. PEPCID [Concomitant]
  5. UNCODEABLE ^UNCLASSIFIABLE^ [Concomitant]
  6. YASMIN [Suspect]
     Indication: CONTRACEPTION
     Route: 048
     Dates: start: 20030901, end: 20060501
  7. YAZ [Suspect]
     Indication: CONTRACEPTION
     Route: 048
     Dates: start: 20070501, end: 20070901
  8. VENTILAN [SALBUTAMOL] [Concomitant]
  9. COMPAZINE [Concomitant]
  10. FLOVENT [Concomitant]
  11. CLARITIN [Concomitant]
  12. PREVACID [Concomitant]
  13. SEROQUEL [Concomitant]
  14. PHENERGAN [Concomitant]
  15. YASMIN [Suspect]
     Indication: DYSMENORRHOEA
  16. ALBUTEROL [Concomitant]
  17. PREDNISONE TAB [Concomitant]
  18. HYDROCODONE [Concomitant]
  19. MYLANTA AR [Concomitant]
     Indication: GASTROENTERITIS VIRAL
  20. ZYRTEC [Concomitant]

REACTIONS (6)
  - ABDOMINAL PAIN [None]
  - VOMITING [None]
  - BOWEL MOVEMENT IRREGULARITY [None]
  - CHOLELITHIASIS [None]
  - CHOLECYSTITIS CHRONIC [None]
  - NAUSEA [None]
